FAERS Safety Report 4503732-X (Version None)
Quarter: 2004Q4

REPORT INFORMATION
  Report Type: 
  Country: None (occurrence: None)
  Receive Date: 20040928
  Receipt Date: 20040609
  Transmission Date: 20050328
  Serious: No
  Sender: FDA-Public Use
  Company Number: 04P-163-0263664-00

PATIENT
  Age: 56 Year
  Sex: Female
  Weight: 53.978 kg

DRUGS (14)
  1. HUMIRA [Suspect]
     Indication: RHEUMATOID ARTHRITIS
     Dosage: 40 MG, 1 IN 2 WK, SUBCUTANEOUS
     Route: 058
     Dates: start: 20030301
  2. METHOTREXATE [Concomitant]
  3. FOLIC ACID [Concomitant]
  4. LOSARTAN POTASSIUM [Concomitant]
  5. RISEDRONATE SODIUM [Concomitant]
  6. LEVOTHYROXINE SODIUM [Concomitant]
  7. CALCIUM [Concomitant]
  8. MULTI-VITAMINS [Concomitant]
  9. ASCORBIC ACID [Concomitant]
  10. FISH OIL [Concomitant]
  11. PAROXETINE HYDROCHLORIDE [Concomitant]
  12. ACETAMINOPHEN [Concomitant]
  13. EXCEDRIN (MIGRAINE) [Concomitant]
  14. HYDROXYCHLOROQUINE PHOSPHATE [Concomitant]

REACTIONS (2)
  - CHILLS [None]
  - SKIN INFECTION [None]
